FAERS Safety Report 19350159 (Version 1)
Quarter: 2021Q2

REPORT INFORMATION
  Report Type: Spontaneous
  Country: CA (occurrence: CA)
  Receive Date: 20210531
  Receipt Date: 20210531
  Transmission Date: 20210717
  Serious: Yes (Disabling)
  Sender: FDA-Public Use
  Company Number: CA-NOVOPROD-814702

PATIENT
  Age: 42 Year
  Sex: Female
  Weight: 114 kg

DRUGS (1)
  1. OZEMPIC [Suspect]
     Active Substance: SEMAGLUTIDE
     Indication: PRODUCT USED FOR UNKNOWN INDICATION
     Dosage: 0.25 MG, QW(1 EVERY 1WEEKS 37.0 DAYS)
     Route: 065

REACTIONS (4)
  - Skin exfoliation [Recovered/Resolved]
  - Wrong technique in product usage process [Recovered/Resolved]
  - Rash erythematous [Recovered/Resolved]
  - Abdominal pain upper [Recovered/Resolved]
